FAERS Safety Report 16767721 (Version 1)
Quarter: 2019Q3

REPORT INFORMATION
  Report Type: Report from Study
  Country: CA (occurrence: CA)
  Receive Date: 20190903
  Receipt Date: 20190903
  Transmission Date: 20191005
  Serious: Yes (Death, Other)
  Sender: FDA-Public Use
  Company Number: CA-PFIZER INC-2019373718

PATIENT
  Age: 66 Year
  Sex: Female
  Weight: 51 kg

DRUGS (19)
  1. ASHWAGANDHA [Concomitant]
     Active Substance: HERBALS
     Dosage: UNK
  2. FOLIC ACID. [Concomitant]
     Active Substance: FOLIC ACID
     Dosage: UNK
  3. BIOTIN [Concomitant]
     Active Substance: BIOTIN
     Dosage: UNK
  4. RESVERATROL [Concomitant]
     Active Substance: DIETARY SUPPLEMENT\RESVERATROL
     Dosage: UNK
  5. SELENOMETHIONINE. [Concomitant]
     Active Substance: SELENOMETHIONINE
     Dosage: UNK
  6. TURKEY TAIL MUSHROOM [Concomitant]
     Dosage: UNK
  7. ASPERGILLUS NIGER VAR NIGER [Concomitant]
     Active Substance: ASPERGILLUS NIGER VAR. NIGER
     Dosage: UNK
  8. CURCUMIN [Concomitant]
     Active Substance: CURCUMIN
     Dosage: UNK
  9. EGCG [Concomitant]
     Active Substance: EPIGALLOCATECHIN GALLATE
     Dosage: UNK
  10. MILK THISTLE [Concomitant]
     Active Substance: DIETARY SUPPLEMENT\HERBALS\MILK THISTLE
     Dosage: UNK
  11. OLIVE LEAF EXTRACT [Concomitant]
     Dosage: UNK
  12. AVASTIN [ATORVASTATIN CALCIUM] [Suspect]
     Active Substance: ATORVASTATIN CALCIUM
     Indication: LUNG NEOPLASM MALIGNANT
     Dosage: 679.5 MG, EVERY 3 WEEKS
     Route: 042
  13. NUX VOMICA [STRYCHNOS NUX-VOMICA] [Concomitant]
     Dosage: UNK
  14. VITAMIN D3 [Concomitant]
     Active Substance: CHOLECALCIFEROL
     Dosage: UNK
  15. QUERCETIN [Concomitant]
     Active Substance: QUERCETIN
     Dosage: UNK
  16. ZOLEDRONIC ACID [Suspect]
     Active Substance: ZOLEDRONIC ACID
     Dosage: UNK
     Route: 065
  17. VITAMIN B12 [Concomitant]
     Active Substance: CYANOCOBALAMIN
     Dosage: UNK
  18. AVASTIN [ATORVASTATIN CALCIUM] [Suspect]
     Active Substance: ATORVASTATIN CALCIUM
     Indication: ADENOCARCINOMA
  19. DOCOSAHEXAENOIC ACID/EICOSAPENTAENOIC ACID [Concomitant]
     Dosage: UNK

REACTIONS (6)
  - Weight increased [Unknown]
  - Musculoskeletal stiffness [Unknown]
  - Herpes zoster [Unknown]
  - Death [Fatal]
  - Ageusia [Unknown]
  - Myalgia [Unknown]
